FAERS Safety Report 11857634 (Version 1)
Quarter: 2015Q4

REPORT INFORMATION
  Report Type: Spontaneous
  Country: US (occurrence: None)
  Receive Date: 20151221
  Receipt Date: 20151221
  Transmission Date: 20160305
  Serious: No
  Sender: FDA-Public Use
  Company Number: None

PATIENT
  Age: 53 Year
  Sex: Female
  Weight: 113.4 kg

DRUGS (10)
  1. VITAMIN D [Concomitant]
     Active Substance: CHOLECALCIFEROL
  2. VITAMINS [Concomitant]
     Active Substance: VITAMINS
  3. PROZAC [Concomitant]
     Active Substance: FLUOXETINE HYDROCHLORIDE
  4. ALBUTERAL INHALER [Concomitant]
  5. LYRICA [Concomitant]
     Active Substance: PREGABALIN
  6. BUTRANS [Suspect]
     Active Substance: BUPRENORPHINE
     Indication: ARACHNOIDITIS
     Dosage: 1 PATCH  1 EVERY 7 DAYS  APPLIED AS MEDICATED PATCH TO SKIN
     Dates: start: 20150605
  7. BUTRANS [Suspect]
     Active Substance: BUPRENORPHINE
     Indication: ARACHNOIDITIS
     Dosage: 1 PATCH EVERY 7 DAYS  EVERY 7 DAYS APPLIED AS MEDICATED PATCH TO SKIN
     Dates: start: 20150420
  8. BUTRANS [Suspect]
     Active Substance: BUPRENORPHINE
     Indication: COMPLEX REGIONAL PAIN SYNDROME
     Dosage: 1 PATCH  1 EVERY 7 DAYS  APPLIED AS MEDICATED PATCH TO SKIN
     Dates: start: 20150605
  9. FLONASE [Concomitant]
     Active Substance: FLUTICASONE PROPIONATE
  10. BUTRANS [Suspect]
     Active Substance: BUPRENORPHINE
     Indication: COMPLEX REGIONAL PAIN SYNDROME
     Dosage: 1 PATCH EVERY 7 DAYS  EVERY 7 DAYS APPLIED AS MEDICATED PATCH TO SKIN
     Dates: start: 20150420

REACTIONS (6)
  - Application site pain [None]
  - Impaired healing [None]
  - Application site vesicles [None]
  - Application site burn [None]
  - Application site pruritus [None]
  - Application site discharge [None]

NARRATIVE: CASE EVENT DATE: 20150401
